FAERS Safety Report 16608176 (Version 1)
Quarter: 2019Q3

REPORT INFORMATION
  Report Type: Spontaneous
  Country: US (occurrence: US)
  Receive Date: 20190722
  Receipt Date: 20190722
  Transmission Date: 20191004
  Serious: Yes (Other)
  Sender: FDA-Public Use
  Company Number: US-AMICUS THERAPEUTICS, INC.-AMI_487

PATIENT
  Age: 44 Year
  Sex: Female

DRUGS (2)
  1. GALAFOLD [Suspect]
     Active Substance: MIGALASTAT HYDROCHLORIDE
     Indication: FABRY^S DISEASE
     Dosage: UNK
     Dates: start: 201808
  2. TEGRETOL [Suspect]
     Active Substance: CARBAMAZEPINE
     Indication: PAIN

REACTIONS (9)
  - Fatigue [Unknown]
  - Renal disorder [Unknown]
  - Cataract [Unknown]
  - Malaise [Unknown]
  - Insomnia [Unknown]
  - Blood iron decreased [Unknown]
  - Restless legs syndrome [Recovering/Resolving]
  - Urticaria [Unknown]
  - Pain [Unknown]

NARRATIVE: CASE EVENT DATE: 201906
